FAERS Safety Report 4680342-5 (Version None)
Quarter: 2005Q2

REPORT INFORMATION
  Report Type: 
  Country: None (occurrence: None)
  Receive Date: 20050601
  Receipt Date: 20050520
  Transmission Date: 20051028
  Serious: Yes (Hospitalization)
  Sender: FDA-Public Use
  Company Number: 2005RL000060

PATIENT
  Age: 85 Year
  Sex: Male

DRUGS (6)
  1. PROPAFENONE HCL [Suspect]
     Indication: ATRIAL FIBRILLATION
     Dosage: 75 MG; TID; PO
     Route: 048
  2. PROCATEROL HCL [Concomitant]
  3. SALMETEROL [Concomitant]
  4. AMINOPHYLLINE [Concomitant]
  5. BUDESONIDE [Concomitant]
  6. DIGOXIN [Concomitant]

REACTIONS (11)
  - ACUTE GENERALISED EXANTHEMATOUS PUSTULOSIS [None]
  - BIOPSY SKIN ABNORMAL [None]
  - ERYTHEMA MULTIFORME [None]
  - RASH PAPULAR [None]
  - RASH PUSTULAR [None]
  - SKIN DISORDER [None]
  - SKIN EXFOLIATION [None]
  - SKIN INFLAMMATION [None]
  - SKIN OEDEMA [None]
  - SUBCUTANEOUS ABSCESS [None]
  - WHITE BLOOD CELL COUNT INCREASED [None]
